FAERS Safety Report 12415285 (Version 1)
Quarter: 2016Q2

REPORT INFORMATION
  Report Type: Spontaneous
  Country: US (occurrence: US)
  Receive Date: 20160530
  Receipt Date: 20160530
  Transmission Date: 20160815
  Serious: No
  Sender: FDA-Public Use
  Company Number: US-PFIZER INC-2016249012

PATIENT
  Age: 49 Year
  Sex: Male
  Weight: 70 kg

DRUGS (1)
  1. LYRICA [Suspect]
     Active Substance: PREGABALIN
     Dosage: UNK

REACTIONS (6)
  - Paraesthesia [Unknown]
  - Neuralgia [Unknown]
  - Restless legs syndrome [Unknown]
  - Condition aggravated [Unknown]
  - Hypoaesthesia [Unknown]
  - Fall [Unknown]
